FAERS Safety Report 6919776-4 (Version None)
Quarter: 2010Q3

REPORT INFORMATION
  Report Type: 
  Country: None (occurrence: None)
  Receive Date: 20100811
  Receipt Date: 20100729
  Transmission Date: 20110219
  Serious: No
  Sender: FDA-Public Use
  Company Number: US-B.I. PHARMACEUTICALS,INC./RIDGEFIELD-2008-BP-17081BP

PATIENT
  Sex: Female

DRUGS (6)
  1. COMBIVENT [Suspect]
     Indication: ASTHMA
     Dosage: 8 PUF
     Route: 055
     Dates: start: 19980101
  2. SEROQUEL [Concomitant]
  3. NEURONTIN [Concomitant]
  4. XANAX [Concomitant]
  5. TOPAMAX [Concomitant]
  6. GABAPENTIN [Concomitant]

REACTIONS (3)
  - DRUG INEFFECTIVE [None]
  - OROPHARYNGEAL PAIN [None]
  - THROAT IRRITATION [None]
